FAERS Safety Report 12399193 (Version 1)
Quarter: 2016Q2

REPORT INFORMATION
  Report Type: Spontaneous
  Country: US (occurrence: US)
  Receive Date: 20160524
  Receipt Date: 20160524
  Transmission Date: 20160815
  Serious: No
  Sender: FDA-Public Use
  Company Number: US-MDT-ADR-2016-00386

PATIENT
  Age: 45 Year
  Sex: Female

DRUGS (4)
  1. LIDOCAINE. [Suspect]
     Active Substance: LIDOCAINE
     Route: 037
  2. MORPHINE SULFATE. [Suspect]
     Active Substance: MORPHINE SULFATE
     Route: 037
  3. COMPOUNDED BACLOFEN [Suspect]
     Active Substance: BACLOFEN
     Route: 037
  4. FENTANYL. [Suspect]
     Active Substance: FENTANYL
     Route: 037

REACTIONS (4)
  - Pelvic cyst [Unknown]
  - Unevaluable event [Unknown]
  - Pain [Unknown]
  - No therapeutic response [Unknown]

NARRATIVE: CASE EVENT DATE: 201601
